FAERS Safety Report 12436772 (Version 1)
Quarter: 2016Q2

REPORT INFORMATION
  Report Type: Spontaneous
  Country: US (occurrence: US)
  Receive Date: 20160606
  Receipt Date: 20160606
  Transmission Date: 20160815
  Serious: No
  Sender: FDA-Public Use
  Company Number: US-JAZZ-2015-US-018287

PATIENT
  Sex: Female

DRUGS (4)
  1. XYREM [Suspect]
     Active Substance: SODIUM OXYBATE
     Indication: SOMNOLENCE
     Dosage: 4 OR 4.5 G
     Route: 048
  2. XYREM [Suspect]
     Active Substance: SODIUM OXYBATE
     Dosage: 3.75 G, BID
     Route: 048
  3. CANNABIS OILS [Suspect]
     Active Substance: CANNABIS SATIVA SEED OIL
     Indication: ARTHRITIS
  4. XYREM [Suspect]
     Active Substance: SODIUM OXYBATE
     Indication: NARCOLEPSY
     Dosage: UNKNOWN DOSE
     Route: 048

REACTIONS (6)
  - Hot flush [Recovered/Resolved]
  - Vertigo [Recovered/Resolved]
  - Burning sensation [Unknown]
  - Disorientation [Recovered/Resolved]
  - Arthritis [Unknown]
  - Nausea [Recovered/Resolved]
